FAERS Safety Report 9122165 (Version 3)
Quarter: 2013Q2

REPORT INFORMATION
  Report Type: Spontaneous
  Country: US (occurrence: None)
  Receive Date: 20130125
  Receipt Date: 20130401
  Transmission Date: 20140414
  Serious: Yes (Hospitalization)
  Sender: FDA-Public Use
  Company Number: 2012US-004485

PATIENT
  Age: 41 Year
  Sex: Female
  Weight: 92 kg

DRUGS (4)
  1. OMONTYS (PEGINESATIDE) SOLUTION FOR INJECTION [Suspect]
     Indication: NEPHROGENIC ANAEMIA
     Route: 042
     Dates: start: 20121204, end: 20121204
  2. VENOFER [Concomitant]
  3. ZEMPLAR (PARICALCITROL) [Concomitant]
  4. HEPARIN (HEPARIN) [Concomitant]

REACTIONS (6)
  - Anaphylactic reaction [None]
  - Dyspnoea [None]
  - Chest pain [None]
  - Pallor [None]
  - Vomiting [None]
  - Hypotension [None]
